FAERS Safety Report 9363559 (Version 2)
Quarter: 2013Q3

REPORT INFORMATION
  Report Type: Spontaneous
  Country: US (occurrence: US)
  Receive Date: 20130624
  Receipt Date: 20130807
  Transmission Date: 20140515
  Serious: No
  Sender: FDA-Public Use
  Company Number: US-JNJFOC-20130518483

PATIENT
  Age: 46 Year
  Sex: Female

DRUGS (3)
  1. INVEGA SUSTENNA [Suspect]
     Indication: PSYCHOTIC DISORDER
     Route: 030
     Dates: start: 20130314
  2. COGENTIN [Concomitant]
     Indication: ADVERSE DRUG REACTION
     Route: 048
     Dates: start: 2011
  3. BENZTROPINE [Concomitant]
     Indication: EXTRAPYRAMIDAL DISORDER
     Route: 048
     Dates: start: 20110104

REACTIONS (3)
  - Drug dose omission [Not Recovered/Not Resolved]
  - Syringe issue [Unknown]
  - Product quality issue [Unknown]
